FAERS Safety Report 18326056 (Version 1)
Quarter: 2020Q3

REPORT INFORMATION
  Report Type: Spontaneous
  Country: CN (occurrence: CN)
  Receive Date: 20200929
  Receipt Date: 20200929
  Transmission Date: 20201103
  Serious: Yes (Hospitalization)
  Sender: FDA-Public Use
  Company Number: CN-PFIZER INC-2020372996

PATIENT
  Age: 73 Year
  Sex: Male
  Weight: 85 kg

DRUGS (1)
  1. VFEND [Suspect]
     Active Substance: VORICONAZOLE
     Indication: FUNGAL INFECTION
     Dosage: 300 MG, 2X/DAY
     Route: 041
     Dates: start: 20200918, end: 20200921

REACTIONS (5)
  - Halo vision [Recovering/Resolving]
  - Anxiety [Recovering/Resolving]
  - Mental disorder [Recovering/Resolving]
  - Hallucination [Recovering/Resolving]
  - Dreamy state [Recovering/Resolving]

NARRATIVE: CASE EVENT DATE: 20200920
